FAERS Safety Report 9217418 (Version 1)
Quarter: 2013Q2

REPORT INFORMATION
  Report Type: Spontaneous
  Country: US (occurrence: None)
  Receive Date: 20130405
  Receipt Date: 20130405
  Transmission Date: 20140414
  Serious: Yes (Other)
  Sender: FDA-Public Use
  Company Number: None

PATIENT
  Age: 82 Year
  Sex: Male
  Weight: 63.8 kg

DRUGS (1)
  1. IOPAMIDOL [Suspect]

REACTIONS (1)
  - Hyperthyroidism [None]
